FAERS Safety Report 14295266 (Version 2)
Quarter: 2018Q1

REPORT INFORMATION
  Report Type: Spontaneous
  Country: US (occurrence: US)
  Receive Date: 20171218
  Receipt Date: 20180130
  Transmission Date: 20180509
  Serious: Yes (Life-Threatening, Other)
  Sender: FDA-Public Use
  Company Number: US-DRREDDYS-USA/USA/17/0095018

PATIENT
  Age: 59 Year
  Sex: Female

DRUGS (6)
  1. SILDENAFIL. [Suspect]
     Active Substance: SILDENAFIL
     Indication: PULMONARY ARTERIAL PRESSURE INCREASED
  2. TREPROSTINIL [Suspect]
     Active Substance: TREPROSTINIL
     Indication: RIGHT VENTRICULAR DYSFUNCTION
  3. MACITENTAN [Suspect]
     Active Substance: MACITENTAN
     Indication: RIGHT VENTRICULAR DYSFUNCTION
  4. MACITENTAN [Suspect]
     Active Substance: MACITENTAN
     Indication: PULMONARY ARTERIAL PRESSURE INCREASED
     Route: 065
  5. TREPROSTINIL [Suspect]
     Active Substance: TREPROSTINIL
     Indication: PULMONARY ARTERIAL PRESSURE INCREASED
     Route: 042
  6. SILDENAFIL. [Suspect]
     Active Substance: SILDENAFIL
     Indication: RIGHT VENTRICULAR DYSFUNCTION
     Route: 048

REACTIONS (3)
  - Cardiac ventricular thrombosis [Recovered/Resolved]
  - Deep vein thrombosis [Recovered/Resolved]
  - Drug ineffective [Unknown]
